FAERS Safety Report 14554819 (Version 3)
Quarter: 2018Q2

REPORT INFORMATION
  Report Type: Spontaneous
  Country: FR (occurrence: FR)
  Receive Date: 20180220
  Receipt Date: 20180406
  Transmission Date: 20180711
  Serious: Yes (Life-Threatening)
  Sender: FDA-Public Use
  Company Number: FR-PFIZER INC-2017391181

PATIENT
  Age: 75 Year
  Sex: Male

DRUGS (4)
  1. RIFAMPICIN [Interacting]
     Active Substance: RIFAMPIN
     Indication: ANTIBIOTIC THERAPY
     Dosage: 600 MG, 2X/DAY
  2. CEFAZOLIN [Suspect]
     Active Substance: CEFAZOLIN
     Indication: ANTIBIOTIC THERAPY
     Dosage: 1 G, DAILY
     Route: 042
  3. CEFAZOLIN [Interacting]
     Active Substance: CEFAZOLIN
     Indication: ENDOCARDITIS STAPHYLOCOCCAL
  4. RIFAMPICIN [Interacting]
     Active Substance: RIFAMPIN
     Indication: ENDOCARDITIS STAPHYLOCOCCAL

REACTIONS (3)
  - Drug interaction [Recovered/Resolved]
  - Vitamin K deficiency [Recovered/Resolved]
  - Hypoprothrombinaemia [Recovered/Resolved]
